FAERS Safety Report 5614641-7 (Version None)
Quarter: 2008Q1

REPORT INFORMATION
  Report Type: 
  Country: None (occurrence: None)
  Receive Date: 20080131
  Receipt Date: 20080123
  Transmission Date: 20080703
  Serious: Yes (Death)
  Sender: FDA-Public Use
  Company Number: 2008-171086-NL

PATIENT
  Age: 48 Year
  Sex: Male

DRUGS (6)
  1. REMERON [Suspect]
     Dosage: 15 MG DAILY ORAL, AT NIGHT
     Route: 048
  2. PEGASYS [Suspect]
     Dosage: 180 MG DAILY
  3. RIBAVIRIN [Suspect]
  4. XANAX [Concomitant]
  5. AMBIEN [Concomitant]
  6. ROZEREM (RAMELETON) [Concomitant]

REACTIONS (3)
  - DRUG INEFFECTIVE [None]
  - INSOMNIA [None]
  - OVERDOSE [None]
